FAERS Safety Report 11106206 (Version 2)
Quarter: 2015Q2

REPORT INFORMATION
  Report Type: Spontaneous
  Country: US (occurrence: None)
  Receive Date: 20150508
  Receipt Date: 20150526
  Transmission Date: 20150821
  Serious: Yes (Hospitalization)
  Sender: FDA-Public Use
  Company Number: INS201504-000153

PATIENT
  Age: 70 Year
  Sex: Male
  Weight: 120.2 kg

DRUGS (1)
  1. SUBSYS [Suspect]
     Active Substance: FENTANYL
     Indication: CANCER PAIN

REACTIONS (2)
  - Malignant neoplasm progression [None]
  - Pancreatic carcinoma [None]
